FAERS Safety Report 18430585 (Version 1)
Quarter: 2020Q4

REPORT INFORMATION
  Report Type: Spontaneous
  Country: US (occurrence: US)
  Receive Date: 20201026
  Receipt Date: 20201026
  Transmission Date: 20210114
  Serious: No
  Sender: FDA-Public Use
  Company Number: None

PATIENT
  Age: 55 Year
  Sex: Male
  Weight: 92.25 kg

DRUGS (5)
  1. ACETAMINOPHEN 650 MG PO [Concomitant]
     Dates: start: 20201008, end: 20201008
  2. GAMUNEX-C [Suspect]
     Active Substance: HUMAN IMMUNOGLOBULIN G
     Indication: MYOPATHY
     Dosage: ?          OTHER FREQUENCY:Q2W;?
     Route: 042
     Dates: start: 20201008, end: 20201008
  3. GAMUNEX-C [Suspect]
     Active Substance: HUMAN IMMUNOGLOBULIN G
     Indication: MYOPATHY
     Dosage: ?          OTHER FREQUENCY:Q2W;?
     Route: 042
     Dates: start: 20201008, end: 20201008
  4. DIPHENHYDRAMINE 50 MG PO [Concomitant]
     Dates: start: 20201008, end: 20201008
  5. OXCODONE [Concomitant]
     Dates: start: 20201008

REACTIONS (3)
  - Hypoaesthesia [None]
  - Paraesthesia [None]
  - Headache [None]

NARRATIVE: CASE EVENT DATE: 20201008
